FAERS Safety Report 4381183-9 (Version None)
Quarter: 2004Q2

REPORT INFORMATION
  Report Type: 
  Country: None (occurrence: None)
  Receive Date: 20040617
  Receipt Date: 20040617
  Transmission Date: 20050107
  Serious: No
  Sender: FDA-Public Use
  Company Number: None

PATIENT
  Age: 61 Year
  Sex: Female
  Weight: 61.6892 kg

DRUGS (7)
  1. OLANZAPINE [Suspect]
     Indication: MAJOR DEPRESSION
     Dosage: 7.5 MG PO QD
     Route: 048
  2. OLANZAPINE [Suspect]
     Indication: PSYCHOTIC DISORDER
     Dosage: 7.5 MG PO QD
     Route: 048
  3. FOLIC ACID [Concomitant]
  4. LEVOTHYROID [Concomitant]
  5. MULTI-VITAMIN [Concomitant]
  6. PRILOSEC [Concomitant]
  7. TACATION [Concomitant]

REACTIONS (1)
  - OEDEMA PERIPHERAL [None]
